FAERS Safety Report 16131970 (Version 1)
Quarter: 2019Q2

REPORT INFORMATION
  Report Type: Spontaneous
  Country: US (occurrence: US)
  Receive Date: 20190328
  Receipt Date: 20190328
  Transmission Date: 20190711
  Serious: Yes (Other)
  Sender: FDA-Public Use
  Company Number: None

PATIENT
  Age: 78 Year
  Sex: Female
  Weight: 60.3 kg

DRUGS (18)
  1. OCUFLOX [Concomitant]
     Active Substance: OFLOXACIN
  2. KISQALI [Concomitant]
     Active Substance: RIBOCICLIB
  3. FISH OIL [Concomitant]
     Active Substance: FISH OIL
  4. AMLODIPINE [Concomitant]
     Active Substance: AMLODIPINE BESYLATE
  5. FASLODEX [Concomitant]
     Active Substance: FULVESTRANT
  6. ATENOLOL. [Concomitant]
     Active Substance: ATENOLOL
  7. VERZENIO [Suspect]
     Active Substance: ABEMACICLIB
     Indication: BREAST CANCER
     Route: 048
     Dates: start: 20190128
  8. CALCIUM + D3 [Concomitant]
     Active Substance: CALCIUM\CHOLECALCIFEROL
  9. IBRANCE [Concomitant]
     Active Substance: PALBOCICLIB
  10. VITAMIN D NOS [Concomitant]
     Active Substance: VITAMIN D NOS
  11. PRED FORTE [Concomitant]
     Active Substance: PREDNISOLONE ACETATE
  12. DEXAMETHASONE. [Concomitant]
     Active Substance: DEXAMETHASONE
  13. LETROZOLE. [Concomitant]
     Active Substance: LETROZOLE
  14. TIMOLOL MALEATE. [Concomitant]
     Active Substance: TIMOLOL MALEATE
  15. DOXYCYCLINE HYCLATE. [Concomitant]
     Active Substance: DOXYCYCLINE HYCLATE
  16. RANITIDINE. [Concomitant]
     Active Substance: RANITIDINE
  17. MULTIVITAMIN [Concomitant]
     Active Substance: VITAMINS
  18. CINNAMON. [Concomitant]
     Active Substance: CINNAMON

REACTIONS (5)
  - Pericardial effusion [None]
  - Decreased appetite [None]
  - Nausea [None]
  - Diarrhoea [None]
  - Vomiting [None]
